FAERS Safety Report 5278311-X (Version None)
Quarter: 2007Q1

REPORT INFORMATION
  Report Type: 
  Country: None (occurrence: None)
  Receive Date: 20070322
  Receipt Date: 20070314
  Transmission Date: 20070707
  Serious: Yes (Other)
  Sender: FDA-Public Use
  Company Number: 2007SP003267

PATIENT
  Age: 60 Month
  Sex: Male
  Weight: 84.369 kg

DRUGS (12)
  1. PEG-INTRON [Suspect]
     Indication: HEPATITIS C
     Dosage: SEE IMAGE
     Route: 058
     Dates: start: 20051101, end: 20061201
  2. PEG-INTRON [Suspect]
     Indication: HEPATITIS C
     Dosage: SEE IMAGE
     Route: 058
     Dates: start: 20060120
  3. RIBAVIRIN [Suspect]
     Indication: HEPATITIS C
     Dosage: SEE IMAGE
     Route: 048
     Dates: start: 20051101, end: 20061201
  4. RIBAVIRIN [Suspect]
     Indication: HEPATITIS C
     Dosage: SEE IMAGE
     Route: 048
     Dates: start: 20060120
  5. GLYBURIDE W/METFORMIN HYDROCHLORIDE [Concomitant]
  6. PRILOSEC /00661201/ [Concomitant]
  7. FLOMAX [Concomitant]
  8. SONATA [Concomitant]
  9. UROCRIT [Concomitant]
  10. GAS-X [Concomitant]
  11. M.V.I. [Concomitant]
  12. COLACE [Concomitant]

REACTIONS (2)
  - ANAEMIA [None]
  - RENAL CELL CARCINOMA STAGE UNSPECIFIED [None]
